FAERS Safety Report 5370346-1 (Version None)
Quarter: 2007Q2

REPORT INFORMATION
  Report Type: 
  Country: None (occurrence: None)
  Receive Date: 20070626
  Receipt Date: 20070625
  Transmission Date: 20071010
  Serious: Yes (Death, Hospitalization)
  Sender: FDA-Public Use
  Company Number: IN-BRISTOL-MYERS SQUIBB COMPANY-13493515

PATIENT
  Age: 75 Year
  Sex: Male
  Weight: 51 kg

DRUGS (16)
  1. PACLITAXEL [Suspect]
     Indication: NON-SMALL CELL LUNG CANCER
     Dosage: ALSO REPORTED AS LOT NUMBER 5C06060, EXP. DATE MAR-2007
     Route: 042
     Dates: start: 20060809
  2. CARBOPLATIN [Suspect]
     Indication: NON-SMALL CELL LUNG CANCER
     Route: 042
     Dates: start: 20060809
  3. INSULIN [Concomitant]
     Indication: DIABETES MELLITUS
     Route: 058
     Dates: start: 20060201
  4. GRANISETRON [Concomitant]
     Route: 042
     Dates: start: 20060809, end: 20060809
  5. DEXAMETHASONE 0.5MG TAB [Concomitant]
     Route: 042
     Dates: start: 20060809, end: 20060809
  6. EFCORLIN [Concomitant]
     Route: 042
     Dates: start: 20060809, end: 20060809
  7. PROMETHAZINE [Concomitant]
     Route: 042
     Dates: start: 20060809, end: 20060809
  8. RANITIDINE HCL [Concomitant]
     Route: 042
     Dates: start: 20060809, end: 20060809
  9. SODIUM CHLORIDE [Concomitant]
     Route: 042
     Dates: start: 20060809, end: 20060809
  10. DEXTROSE 5% [Concomitant]
     Route: 042
     Dates: start: 20060809, end: 20060809
  11. TANTUM [Concomitant]
     Route: 048
     Dates: start: 20060809
  12. METOCLOPRAMIDE HYDROCHLORIDE [Concomitant]
     Route: 048
     Dates: start: 20060809, end: 20060812
  13. LORAZEPAM [Concomitant]
     Route: 048
     Dates: start: 20060809, end: 20060812
  14. RANITIDINE [Concomitant]
     Route: 048
     Dates: start: 20060809, end: 20060812
  15. DEXAMETHASONE 0.5MG TAB [Concomitant]
     Route: 048
     Dates: start: 20060809, end: 20060812
  16. GRANISETRON [Concomitant]
     Route: 048
     Dates: start: 20060809, end: 20060812

REACTIONS (4)
  - CARDIO-RESPIRATORY ARREST [None]
  - DIARRHOEA [None]
  - DYSPNOEA [None]
  - SEPSIS [None]
